FAERS Safety Report 5008669-8 (Version None)
Quarter: 2006Q2

REPORT INFORMATION
  Report Type: 
  Country: None (occurrence: None)
  Receive Date: 20060523
  Receipt Date: 20060504
  Transmission Date: 20061013
  Serious: Yes (Other)
  Sender: FDA-Public Use
  Company Number: PT-GLAXOSMITHKLINE-B0423032A

PATIENT
  Age: 48 Year
  Sex: Male
  Weight: 58 kg

DRUGS (5)
  1. VALTREX [Suspect]
     Indication: HERPES SIMPLEX
     Dosage: 500MG PER DAY
     Route: 048
     Dates: start: 20060101
  2. FOLIC ACID [Concomitant]
  3. SEVELAMER [Concomitant]
  4. CALCIUM CARBONATE [Concomitant]
  5. CINACALCET HYDROCHLORIDE [Concomitant]

REACTIONS (2)
  - HALLUCINATION [None]
  - PARANOIA [None]
